FAERS Safety Report 7723145-7 (Version None)
Quarter: 2011Q3

REPORT INFORMATION
  Report Type: 
  Country: None (occurrence: None)
  Receive Date: 20110901
  Receipt Date: 20110822
  Transmission Date: 20111222
  Serious: Yes (Death, Hospitalization, Other)
  Sender: FDA-Public Use
  Company Number: JP-ASTELLAS-2011US005384

PATIENT
  Sex: Female

DRUGS (14)
  1. TARCEVA [Suspect]
     Indication: LUNG ADENOCARCINOMA RECURRENT
     Dosage: UNK
     Route: 048
     Dates: start: 20110111, end: 20110117
  2. PACLITAXEL [Concomitant]
     Indication: PRODUCT USED FOR UNKNOWN INDICATION
     Dosage: UNK
     Route: 065
     Dates: start: 20110118, end: 20110401
  3. RANITIDINE [Concomitant]
     Indication: PRODUCT USED FOR UNKNOWN INDICATION
     Dosage: UNK
     Route: 065
     Dates: start: 20110118, end: 20110401
  4. AVASTIN [Suspect]
     Indication: NON-SMALL CELL LUNG CANCER
     Dosage: 15 MG/KG, UNKNOWN/D
     Route: 041
     Dates: start: 20101109
  5. DEXAMETHASONE SODIUM PHOSPHATE [Concomitant]
     Indication: PRODUCT USED FOR UNKNOWN INDICATION
     Dosage: UNK
     Route: 065
  6. DIPHENHYDRAMINE HCL [Concomitant]
     Indication: PRODUCT USED FOR UNKNOWN INDICATION
     Dosage: UNK
     Route: 065
  7. RESTAMIN [Concomitant]
     Indication: PRODUCT USED FOR UNKNOWN INDICATION
     Dosage: UNK
     Route: 065
     Dates: start: 20110118
  8. AVASTIN [Suspect]
     Dosage: 15 MG/KG, Q3WKS
     Route: 041
     Dates: start: 20110519
  9. GRANISETRON [Concomitant]
     Indication: PRODUCT USED FOR UNKNOWN INDICATION
     Dosage: UNK
     Route: 065
     Dates: start: 20110118, end: 20110401
  10. DEXAMETHASONE SODIUM PHOSPHATE [Concomitant]
     Indication: PRODUCT USED FOR UNKNOWN INDICATION
     Dosage: UNK
     Route: 065
     Dates: start: 20110118, end: 20110401
  11. AVASTIN [Concomitant]
     Indication: PRODUCT USED FOR UNKNOWN INDICATION
     Dosage: UNK
     Route: 065
  12. AVASTIN [Suspect]
     Dosage: 15 MG/KG, Q3WKS
     Route: 041
     Dates: start: 20110118, end: 20110427
  13. ACETAMINOPHEN [Concomitant]
     Indication: PRODUCT USED FOR UNKNOWN INDICATION
     Dosage: UNK
     Route: 065
  14. ACETAMINOPHEN [Concomitant]
     Indication: PRODUCT USED FOR UNKNOWN INDICATION
     Dosage: UNK
     Route: 065
     Dates: start: 20110101

REACTIONS (13)
  - METASTASES TO BONE [None]
  - JAUNDICE CHOLESTATIC [None]
  - ADNEXA UTERI MASS [None]
  - DEEP VEIN THROMBOSIS [None]
  - PULMONARY EMBOLISM [None]
  - DISEASE PROGRESSION [None]
  - PANCREATIC CARCINOMA METASTATIC [None]
  - METASTASES TO LYMPH NODES [None]
  - PANCREATITIS ACUTE [None]
  - NEUTROPHIL COUNT DECREASED [None]
  - LUNG ADENOCARCINOMA [None]
  - HYDRONEPHROSIS [None]
  - SKIN DISORDER [None]
